FAERS Safety Report 16155021 (Version 1)
Quarter: 2019Q2

REPORT INFORMATION
  Report Type: Spontaneous
  Country: GB (occurrence: GB)
  Receive Date: 20190403
  Receipt Date: 20190403
  Transmission Date: 20190711
  Serious: Yes (Other)
  Sender: FDA-Public Use
  Company Number: GB-TEVA-2019-GB-1032587

PATIENT
  Age: 45 Year
  Sex: Female
  Weight: 91 kg

DRUGS (5)
  1. PREDNISOLONE. [Concomitant]
     Active Substance: PREDNISOLONE
     Dosage: 40MG IMMEDIATELY OR SPEAK TO DOCTOR BEFORE ANY FURTHER DOSES
     Dates: start: 20190201, end: 20190206
  2. CHLORPHENAMINE [Concomitant]
     Active Substance: CHLORPHENIRAMINE MALEATE
     Dosage: 3 DOSAGE FORMS DAILY;
     Dates: start: 20190122, end: 20190205
  3. FUROSEMIDE. [Concomitant]
     Active Substance: FUROSEMIDE
     Dosage: 1 DOSAGE FORMS DAILY;
     Dates: start: 20190305
  4. AMLODIPINE [Concomitant]
     Active Substance: AMLODIPINE BESYLATE
     Dosage: 5 MILLIGRAM DAILY;
     Dates: start: 20190122, end: 20190305
  5. RAMIPRIL. [Suspect]
     Active Substance: RAMIPRIL
     Dosage: 2.5 MILLIGRAM DAILY;
     Route: 048
     Dates: start: 20180709, end: 20190125

REACTIONS (1)
  - Dermatitis allergic [Recovering/Resolving]
